FAERS Safety Report 4523587-7 (Version None)
Quarter: 2004Q4

REPORT INFORMATION
  Report Type: 
  Country: None (occurrence: None)
  Receive Date: 20041210
  Receipt Date: 20041203
  Transmission Date: 20050328
  Serious: Yes (Other)
  Sender: FDA-Public Use
  Company Number: CH-BRISTOL-MYERS SQUIBB COMPANY-12784369

PATIENT

DRUGS (1)
  1. REYATAZ [Suspect]

REACTIONS (1)
  - PANCYTOPENIA [None]
